FAERS Safety Report 4655614-0 (Version None)
Quarter: 2005Q2

REPORT INFORMATION
  Report Type: 
  Country: None (occurrence: None)
  Receive Date: 20050505
  Receipt Date: 20050429
  Transmission Date: 20051028
  Serious: Yes (Hospitalization)
  Sender: FDA-Public Use
  Company Number: 05-NIP00050

PATIENT
  Age: 34 Year
  Sex: Female
  Weight: 55 kg

DRUGS (1)
  1. NIPENT [Suspect]
     Indication: GRAFT VERSUS HOST DISEASE
     Dosage: 0.2857 MG/M2 (4 MG/M2, EVERY 2 WEEKS), INTRAVENOUS
     Route: 042
     Dates: start: 20050202

REACTIONS (3)
  - ASTHENIA [None]
  - DEHYDRATION [None]
  - HEPATIC ENZYME INCREASED [None]
